FAERS Safety Report 18243632 (Version 1)
Quarter: 2020Q3

REPORT INFORMATION
  Report Type: Spontaneous
  Country: US (occurrence: US)
  Receive Date: 20200908
  Receipt Date: 20200908
  Transmission Date: 20201103
  Serious: Yes (Other)
  Sender: FDA-Public Use
  Company Number: US-BAYER-2020-186045

PATIENT

DRUGS (2)
  1. CLARITIN [Suspect]
     Active Substance: LORATADINE
     Indication: SEASONAL ALLERGY
  2. COLD [CAFFEINE;CHLORPHENAMINE MALEATE;PARACETAMOL;PHENYLEPHRINE HY [Concomitant]

REACTIONS (1)
  - Drug dependence [Unknown]
